FAERS Safety Report 6442922-6 (Version None)
Quarter: 2009Q4

REPORT INFORMATION
  Report Type: 
  Country: None (occurrence: None)
  Receive Date: 20091117
  Receipt Date: 20091113
  Transmission Date: 20100525
  Serious: Yes (Hospitalization)
  Sender: FDA-Public Use
  Company Number: CH-BAYER-200939153GPV

PATIENT
  Age: 64 Year
  Sex: Female
  Weight: 66 kg

DRUGS (8)
  1. SORAFENIB [Suspect]
     Indication: DRUG USE FOR UNKNOWN INDICATION
     Dates: start: 20090525
  2. TEMOZOLOMIDE [Suspect]
     Indication: DRUG USE FOR UNKNOWN INDICATION
  3. INSULIN ACTRAPID [Concomitant]
     Route: 058
  4. INSULIN LISPRO PROTAMINE [Concomitant]
     Route: 058
  5. NEXIUM [Concomitant]
     Dosage: TOTAL DAILY DOSE: 40 MG
     Route: 048
  6. REMERON [Concomitant]
     Dosage: TOTAL DAILY DOSE: 15 MG
     Route: 048
  7. PREDNISOLONE [Concomitant]
  8. CREON (PANCREATIS PULVIS CORRESP. AMYLASUM, LIPASUM PROTEASUM) [Concomitant]

REACTIONS (1)
  - PULMONARY EMBOLISM [None]
